FAERS Safety Report 25336578 (Version 1)
Quarter: 2025Q2

REPORT INFORMATION
  Report Type: Spontaneous
  Country: JP (occurrence: JP)
  Receive Date: 20250520
  Receipt Date: 20250520
  Transmission Date: 20250716
  Serious: Yes (Other)
  Sender: LEO PHARM
  Company Number: JP-LEO Pharma-379325

PATIENT
  Sex: Female

DRUGS (1)
  1. ADBRY [Suspect]
     Active Substance: TRALOKINUMAB-LDRM
     Indication: Dermatitis atopic
     Dosage: ONCE EVERY 2 WEEKS
     Route: 058

REACTIONS (9)
  - Injection site pain [Unknown]
  - Injection site erythema [Unknown]
  - Facial discomfort [Recovered/Resolved]
  - Injection site swelling [Unknown]
  - Atopic cataract [Unknown]
  - Injection site vesicles [Unknown]
  - Injection site induration [Unknown]
  - Glaucoma [Unknown]
  - Fear of injection [Unknown]
